FAERS Safety Report 8504651-4 (Version None)
Quarter: 2012Q3

REPORT INFORMATION
  Report Type: 
  Country: None (occurrence: None)
  Receive Date: 20120711
  Receipt Date: 20120626
  Transmission Date: 20120928
  Serious: Yes (Other)
  Sender: FDA-Public Use
  Company Number: DE-ROCHE-1070541

PATIENT
  Age: 34 Year
  Sex: Female
  Weight: 58 kg

DRUGS (3)
  1. ACTEMRA [Suspect]
     Indication: RHEUMATOID ARTHRITIS
     Dosage: LAST DOSE PRIOR TO SAE ON 15/MAY/2012
     Route: 042
     Dates: start: 20110511, end: 20120515
  2. METHOTREXATE SODIUM [Concomitant]
     Route: 058
     Dates: start: 20100210, end: 20120425
  3. PREDNISOLONE [Concomitant]
     Route: 048

REACTIONS (3)
  - PLEURISY [None]
  - PNEUMONIA [None]
  - VIRAL UPPER RESPIRATORY TRACT INFECTION [None]
